FAERS Safety Report 14534405 (Version 3)
Quarter: 2018Q2

REPORT INFORMATION
  Report Type: Spontaneous
  Country: BR (occurrence: BR)
  Receive Date: 20180215
  Receipt Date: 20180525
  Transmission Date: 20180711
  Serious: Yes (Hospitalization)
  Sender: FDA-Public Use
  Company Number: BR-ABBVIE-18P-020-2255136-00

PATIENT
  Age: 38 Year
  Sex: Female

DRUGS (15)
  1. DEPAKOTE ER [Suspect]
     Active Substance: DIVALPROEX SODIUM
     Dosage: DAILY DOSE: 500 MG AT NIGHT, 15 TO 20 MINUTES AFTER DINNER
     Route: 048
  2. DIOSMIN [Concomitant]
     Active Substance: DIOSMIN
     Indication: BIPOLAR DISORDER
  3. NEOSALDINA [Concomitant]
     Active Substance: CAFFEINE\ISOMETHEPTENE\METHIMAZOLE
     Indication: MIGRAINE
     Dosage: MORNING/NIGHT
     Route: 048
  4. PARACETAMOL [Concomitant]
     Active Substance: ACETAMINOPHEN
     Indication: HEADACHE
  5. DEPAKOTE ER [Suspect]
     Active Substance: DIVALPROEX SODIUM
     Indication: BIPOLAR DISORDER
     Dosage: DAILY DOSE: 500 MG AT NIGHT, 15 TO 20 MINUTES AFTER DINNER
     Route: 048
  6. RIVOTRIL [Concomitant]
     Active Substance: CLONAZEPAM
     Indication: INSOMNIA
     Dosage: ADMINUSTERED AT NIGHT - HALF TABLET OR 1 TABLET, BEFORE GOING TO BED
     Route: 048
     Dates: start: 2003
  7. MELLARIL [Concomitant]
     Active Substance: THIORIDAZINE HYDROCHLORIDE
     Indication: SCHIZOPHRENIA
  8. ESC [Concomitant]
     Active Substance: ESCITALOPRAM OXALATE
     Indication: DEPRESSION
     Dosage: PATIENT TAKES THIS MEDICATION SHORTLY BEFORE DEPAKOTE ER
  9. DIOSMIN [Concomitant]
     Active Substance: DIOSMIN
     Indication: CARDIOVASCULAR DISORDER
  10. ALLESTRA [Suspect]
     Active Substance: ETHINYL ESTRADIOL\GESTODENE
     Indication: CONTRACEPTION
  11. DEPAKOTE ER [Suspect]
     Active Substance: DIVALPROEX SODIUM
     Route: 048
  12. ALLESTRA [Suspect]
     Active Substance: ETHINYL ESTRADIOL\GESTODENE
     Indication: HORMONE REPLACEMENT THERAPY
     Dosage: ADMINISTERED AT 6PM SINCE ALMOST 4 MONTHS AGO
     Route: 048
  13. PARACETAMOL [Concomitant]
     Active Substance: ACETAMINOPHEN
     Indication: MIGRAINE
     Dosage: ADMINISTERED WITH WATER - WHEN NECESSARY
     Route: 048
  14. ESC [Concomitant]
     Active Substance: ESCITALOPRAM OXALATE
     Indication: BIPOLAR DISORDER
  15. RIVOTRIL [Concomitant]
     Active Substance: CLONAZEPAM
     Indication: DEPRESSION

REACTIONS (14)
  - Dizziness [Recovered/Resolved]
  - Tongue disorder [Recovered/Resolved]
  - Peripheral swelling [Recovering/Resolving]
  - Binge eating [Recovered/Resolved]
  - Somnolence [Not Recovered/Not Resolved]
  - Psychotic disorder [Recovered/Resolved]
  - Syncope [Recovered/Resolved]
  - Wrong technique in product usage process [Unknown]
  - Pain in extremity [Recovering/Resolving]
  - Gastrointestinal disorder [Unknown]
  - Seizure [Unknown]
  - Therapy cessation [Unknown]
  - Dyspnoea [Recovered/Resolved]
  - Weight increased [Not Recovered/Not Resolved]

NARRATIVE: CASE EVENT DATE: 201711
